FAERS Safety Report 8102801-5 (Version None)
Quarter: 2012Q1

REPORT INFORMATION
  Report Type: 
  Country: None (occurrence: None)
  Receive Date: 20120127
  Receipt Date: 20120123
  Transmission Date: 20120608
  Serious: Yes (Other)
  Sender: FDA-Public Use
  Company Number: 2012SP004003

PATIENT
  Age: 29 Year
  Sex: Male

DRUGS (4)
  1. CEFTRIAXONE [Suspect]
     Indication: ANTIBIOTIC PROPHYLAXIS
     Dosage: 2 GM; ;IV
     Route: 042
     Dates: start: 20111013, end: 20111013
  2. PROPOFOL [Suspect]
     Indication: GENERAL ANAESTHESIA
     Dosage: 160 MG; ; IV
     Route: 042
     Dates: start: 20111013, end: 20111013
  3. ROCURONIUM BROMIDE [Suspect]
     Indication: GENERAL ANAESTHESIA
     Dosage: 50 MG; ; IV
     Route: 042
     Dates: start: 20111013, end: 20111013
  4. FENTANYL CITRATE [Suspect]
     Indication: GENERAL ANAESTHESIA
     Dosage: 100 MCG;; IV
     Route: 042
     Dates: start: 20111013, end: 20111013

REACTIONS (1)
  - URTICARIA [None]
